FAERS Safety Report 25632277 (Version 1)
Quarter: 2025Q3

REPORT INFORMATION
  Report Type: Spontaneous
  Country: US (occurrence: None)
  Receive Date: 20250801
  Receipt Date: 20250801
  Transmission Date: 20251021
  Serious: Yes (Death, Hospitalization)
  Sender: FDA-CTU
  Company Number: None

PATIENT
  Age: 12 Year
  Sex: Male
  Weight: 77.7 kg

DRUGS (4)
  1. CALASPARGASE PEGOL-MKNL [Suspect]
     Active Substance: CALASPARGASE PEGOL-MKNL
     Dates: end: 20250707
  2. DASATINIB [Suspect]
     Active Substance: DASATINIB
     Dates: end: 20250720
  3. DAUNORUBICIN [Suspect]
     Active Substance: DAUNORUBICIN
     Dates: end: 20250717
  4. PREDNISONE [Suspect]
     Active Substance: PREDNISONE
     Dates: end: 20250721

REACTIONS (7)
  - Acute hepatic failure [None]
  - Acute kidney injury [None]
  - Hypervolaemia [None]
  - Oliguria [None]
  - Subdural haemorrhage [None]
  - Respiratory failure [None]
  - Cardiac arrest [None]

NARRATIVE: CASE EVENT DATE: 20250723
